FAERS Safety Report 14314965 (Version 1)
Quarter: 2017Q4

REPORT INFORMATION
  Report Type: Spontaneous
  Country: DE (occurrence: DE)
  Receive Date: 20171221
  Receipt Date: 20171221
  Transmission Date: 20180321
  Serious: Yes (Hospitalization)
  Sender: FDA-Public Use
  Company Number: DE-DRREDDYS-GER/GER/17/0095250

PATIENT
  Age: 22 Year
  Sex: Male

DRUGS (9)
  1. RISPERDAL [Suspect]
     Active Substance: RISPERIDONE
     Indication: SCHIZOPHRENIA
     Dosage: DOSAGE FORM: UNSPECIFIED, 2MG-0MG-2MG
     Dates: start: 20160901, end: 20160910
  2. RISPERDAL [Suspect]
     Active Substance: RISPERIDONE
     Indication: SCHIZOPHRENIA
     Dosage: DOSAGE FORM: UNSPECIFIED, 2MG-0MG-2MG
     Dates: start: 20160826, end: 20160828
  3. RISPERDAL [Suspect]
     Active Substance: RISPERIDONE
     Indication: SCHIZOPHRENIA
     Dosage: DOSAGE FORM: UNSPECIFIED
     Dates: start: 20160822, end: 20160825
  4. HALDOL [Suspect]
     Active Substance: HALOPERIDOL
     Indication: PRODUCT USED FOR UNKNOWN INDICATION
     Dosage: DOSAGE FORM: UNSPECIFIED
     Dates: start: 20160912
  5. HALDOL [Suspect]
     Active Substance: HALOPERIDOL
     Indication: PRODUCT USED FOR UNKNOWN INDICATION
     Dosage: DOSAGE FORM: UNSPECIFIED, 2.5MG-0MG-5MG
     Route: 048
     Dates: start: 201609
  6. AKINETON [Concomitant]
     Active Substance: BIPERIDEN HYDROCHLORIDE
     Indication: PRODUCT USED FOR UNKNOWN INDICATION
     Dates: start: 20160912
  7. RISPERDAL [Suspect]
     Active Substance: RISPERIDONE
     Indication: SCHIZOPHRENIA
     Dosage: DOSAGE FORM: UNSPECIFIED, 3MG-0-3MG
     Dates: start: 20160829, end: 20160831
  8. LORAZEPAM. [Suspect]
     Active Substance: LORAZEPAM
     Indication: PRODUCT USED FOR UNKNOWN INDICATION
     Dosage: DOSAGE FORM: UNSPECIFIED
  9. QUETIAPINE. [Suspect]
     Active Substance: QUETIAPINE
     Indication: PRODUCT USED FOR UNKNOWN INDICATION
     Dosage: DOSAGE FORM: UNSPECIFIED

REACTIONS (5)
  - Oropharyngeal spasm [Recovered/Resolved]
  - Dysphagia [Recovered/Resolved]
  - Refusal of treatment by patient [Unknown]
  - Dyskinesia [Recovered/Resolved]
  - Psychotic disorder [Unknown]

NARRATIVE: CASE EVENT DATE: 20160831
